FAERS Safety Report 9201150 (Version 1)
Quarter: 2013Q2

REPORT INFORMATION
  Report Type: Spontaneous
  Country: US (occurrence: US)
  Receive Date: 20130401
  Receipt Date: 20130401
  Transmission Date: 20140414
  Serious: No
  Sender: FDA-Public Use
  Company Number: US-PFIZER INC-2013103108

PATIENT
  Age: 39 Year
  Sex: Female
  Weight: 70.3 kg

DRUGS (3)
  1. PRISTIQ [Suspect]
     Indication: MAJOR DEPRESSION
     Dosage: 50 MG, 1X/DAY
     Route: 048
     Dates: start: 201003, end: 20130322
  2. WELLBUTRIN [Concomitant]
     Dosage: UNK
  3. DICLOFENAC [Concomitant]
     Indication: FIBROMYALGIA
     Dosage: UNK

REACTIONS (2)
  - Vertigo [Recovered/Resolved]
  - Impaired driving ability [Recovered/Resolved]
